FAERS Safety Report 12163783 (Version 1)
Quarter: 2016Q1

REPORT INFORMATION
  Report Type: Spontaneous
  Country: US (occurrence: None)
  Receive Date: 20160308
  Receipt Date: 20160308
  Transmission Date: 20160526
  Serious: No
  Sender: FDA-Public Use
  Company Number: None

PATIENT
  Age: 67 Year
  Sex: Male
  Weight: 71.6 kg

DRUGS (2)
  1. CISPLATIN. [Suspect]
     Active Substance: CISPLATIN
     Dates: end: 20160107
  2. 5-FLUOROURACIL (5-FU) [Suspect]
     Active Substance: FLUOROURACIL
     Dates: end: 20160107

REACTIONS (1)
  - Hypoacusis [None]

NARRATIVE: CASE EVENT DATE: 20160204
